FAERS Safety Report 7409905-0 (Version None)
Quarter: 2011Q2

REPORT INFORMATION
  Report Type: 
  Country: None (occurrence: None)
  Receive Date: 20110412
  Receipt Date: 20110406
  Transmission Date: 20111010
  Serious: Yes (Other)
  Sender: FDA-Public Use
  Company Number: US-ELI_LILLY_AND_COMPANY-US201102005874

PATIENT
  Sex: Female
  Weight: 50.794 kg

DRUGS (5)
  1. LANTUS [Concomitant]
     Indication: TYPE 1 DIABETES MELLITUS
  2. VASOTEC [Concomitant]
     Dosage: UNK
  3. HUMALOG [Suspect]
     Indication: TYPE 1 DIABETES MELLITUS
     Dosage: 3 U, AS NEEDED
     Route: 065
     Dates: start: 20010101
  4. PROTONIX [Concomitant]
     Dosage: UNK
  5. LOPRESSOR [Concomitant]
     Dosage: UNK

REACTIONS (5)
  - PERIPHERAL VASCULAR DISORDER [None]
  - MYOCARDIAL INFARCTION [None]
  - BLOOD PRESSURE INCREASED [None]
  - GENERAL PHYSICAL HEALTH DETERIORATION [None]
  - IMMUNISATION REACTION [None]
